FAERS Safety Report 16719528 (Version 1)
Quarter: 2019Q3

REPORT INFORMATION
  Report Type: Spontaneous
  Country: US (occurrence: US)
  Receive Date: 20190702
  Receipt Date: 20190702
  Transmission Date: 20191005
  Serious: No
  Sender: FDA-Public Use
  Company Number: None

PATIENT
  Age: 62 Year
  Sex: Female
  Weight: 65.77 kg

DRUGS (1)
  1. ENBREL [Suspect]
     Active Substance: ETANERCEPT
     Indication: LICHEN PLANUS
     Route: 058
     Dates: start: 201702

REACTIONS (4)
  - Lichen planus [None]
  - Tongue blistering [None]
  - Dysstasia [None]
  - Vitamin A deficiency [None]
